FAERS Safety Report 11690900 (Version 2)
Quarter: 2015Q4

REPORT INFORMATION
  Report Type: Spontaneous
  Country: IT (occurrence: IT)
  Receive Date: 20151102
  Receipt Date: 20151110
  Transmission Date: 20160304
  Serious: Yes (Hospitalization)
  Sender: FDA-Public Use
  Company Number: IT-ASTRAZENECA-2015SF04634

PATIENT
  Age: 22922 Day
  Sex: Male

DRUGS (10)
  1. DUROGESIC [Concomitant]
     Active Substance: FENTANYL
     Dosage: 25 MCG/HR TRANSDERMAL PATCH
     Route: 062
  2. INSULIN [Concomitant]
     Active Substance: INSULIN NOS
  3. TAMSULOSIN [Concomitant]
     Active Substance: TAMSULOSIN
  4. LORAZEPAM. [Interacting]
     Active Substance: LORAZEPAM
     Indication: AGITATION
     Route: 048
     Dates: start: 20150807, end: 20150809
  5. SEROQUEL [Suspect]
     Active Substance: QUETIAPINE FUMARATE
     Indication: AGITATION
     Route: 048
     Dates: start: 20150807, end: 20150809
  6. OMEPRAZOLE. [Concomitant]
     Active Substance: OMEPRAZOLE
  7. CARDICOR [Concomitant]
     Active Substance: BISOPROLOL
  8. LACTULOSE. [Concomitant]
     Active Substance: LACTULOSE
  9. CARDIOASPIRIN [Concomitant]
     Active Substance: ASPIRIN
  10. RIFACOL [Concomitant]
     Active Substance: RIFAXIMIN

REACTIONS (3)
  - Bradyphrenia [Recovering/Resolving]
  - Sopor [Recovering/Resolving]
  - Drug interaction [Recovering/Resolving]

NARRATIVE: CASE EVENT DATE: 20150807
